FAERS Safety Report 9501016 (Version 1)
Quarter: 2013Q1

REPORT INFORMATION
  Report Type: Spontaneous
  Country: US (occurrence: None)
  Receive Date: 20130116
  Receipt Date: 20130116
  Transmission Date: 20140127
  Serious: No
  Sender: FDA-Public Use
  Company Number: 1206USA03433

PATIENT
  Age: 60 Year
  Sex: Male

DRUGS (1)
  1. INVANZ [Suspect]
     Indication: APPENDICITIS PERFORATED

REACTIONS (1)
  - Drug hypersensitivity [None]
